FAERS Safety Report 22332513 (Version 1)
Quarter: 2023Q2

REPORT INFORMATION
  Report Type: Spontaneous
  Country: US (occurrence: US)
  Receive Date: 20230517
  Receipt Date: 20230517
  Transmission Date: 20230722
  Serious: Yes (Hospitalization, Other)
  Sender: FDA-Public Use
  Company Number: US-SA-SAC20230516000126

PATIENT
  Age: 62 Year
  Sex: Male

DRUGS (21)
  1. TAXOTERE [Suspect]
     Active Substance: DOCETAXEL
     Indication: Non-small cell lung cancer metastatic
     Dosage: 161 MG IV ON DAY 5 EVERY 21 DAYS
     Route: 042
     Dates: start: 20230203
  2. TAXOTERE [Suspect]
     Active Substance: DOCETAXEL
     Dosage: 130 MG
     Route: 042
  3. OBINUTUZUMAB [Concomitant]
     Active Substance: OBINUTUZUMAB
     Dosage: 1000 MG
     Route: 042
  4. ZOSYN [Concomitant]
     Active Substance: PIPERACILLIN SODIUM\TAZOBACTAM SODIUM
     Dosage: 4.5 G, Q6H
     Route: 042
  5. TESSALON [Concomitant]
     Active Substance: BENZONATATE
     Indication: Cough
     Dosage: 200 MG
  6. MYTUSSIN DAC [Concomitant]
     Dosage: 10 ML, Q4H
     Route: 048
  7. MORPHINE [Concomitant]
     Active Substance: MORPHINE
     Indication: Cough
     Dosage: 15 MG, Q6H
     Route: 048
  8. MORPHINE [Concomitant]
     Active Substance: MORPHINE
     Dosage: UNK, Q4H
     Route: 048
  9. TRAMADOL [Concomitant]
     Active Substance: TRAMADOL
     Dosage: 50 MG, TID
     Route: 048
  10. CEFEPIME [Concomitant]
     Active Substance: CEFEPIME HYDROCHLORIDE
     Dosage: 2 G, TID
     Route: 042
  11. METRONIDAZOLE [Concomitant]
     Active Substance: METRONIDAZOLE
     Dosage: 500 MG, TID
     Route: 042
  12. GRANIX [Concomitant]
     Active Substance: TBO-FILGRASTIM
     Indication: Neutropenia
     Dosage: 5 UG/KG, QD
     Route: 058
  13. LEVOFLOXACIN [Concomitant]
     Active Substance: LEVOFLOXACIN
     Dosage: 750 MG, QD
     Route: 048
  14. ELIQUIS [Concomitant]
     Active Substance: APIXABAN
     Indication: Deep vein thrombosis
     Dosage: 2.5 MG, BID
     Route: 048
     Dates: start: 202208
  15. TRELEGY ELLIPTA [Concomitant]
     Active Substance: FLUTICASONE FUROATE\UMECLIDINIUM BROMIDE\VILANTEROL TRIFENATATE
     Dosage: 100 UG
  16. UMECLIDINIUM [Concomitant]
     Active Substance: UMECLIDINIUM
     Dosage: 62.5 UG
  17. VILANTEROL [Concomitant]
     Active Substance: VILANTEROL
     Indication: Cough
     Dosage: 25 UG, QD
     Route: 055
     Dates: start: 201708
  18. LEVOTHYROXINE [Concomitant]
     Active Substance: LEVOTHYROXINE
     Indication: Hypothyroidism
     Dosage: 112 UG, QD
     Route: 048
     Dates: start: 201708
  19. ALBUTEROL\IPRATROPIUM [Concomitant]
     Active Substance: ALBUTEROL\IPRATROPIUM
     Indication: Cough
     Dosage: 3 ML, PRN
     Route: 055
     Dates: start: 201708
  20. NEURONTIN [Concomitant]
     Active Substance: GABAPENTIN
     Indication: Neuropathy peripheral
     Dosage: 300 MG AT BEDTIME AS NEEDED (AUG-2022 TO ONGOING)
     Route: 048
     Dates: start: 202208
  21. NAPS [Concomitant]
     Dosage: 892 MCG ADMINISTERED ON DAYS 1-4 EVERY 21 DAYS
     Route: 042
     Dates: start: 20230130

REACTIONS (4)
  - Febrile neutropenia [Unknown]
  - Abdominal pain [Unknown]
  - Pneumonitis [Unknown]
  - Neutrophil count decreased [Unknown]
